FAERS Safety Report 20833302 (Version 1)
Quarter: 2022Q2

REPORT INFORMATION
  Report Type: Spontaneous
  Country: US (occurrence: None)
  Receive Date: 20220513
  Receipt Date: 20220513
  Transmission Date: 20220721
  Serious: Yes (Life-Threatening, Hospitalization)
  Sender: FDA-Public Use
  Company Number: None

PATIENT
  Age: 78 Year
  Sex: Female
  Weight: 84.15 kg

DRUGS (10)
  1. HUMAN IMMUNOGLOBULIN G [Suspect]
     Active Substance: HUMAN IMMUNOGLOBULIN G
     Indication: Axonal and demyelinating polyneuropathy
     Dosage: FREQUENCY : EVERY THREE WEEKS;?
     Route: 042
     Dates: start: 20220116, end: 20220414
  2. GABAPENTIN [Concomitant]
     Active Substance: GABAPENTIN
  3. Vit D + C [Concomitant]
  4. ZINC [Concomitant]
     Active Substance: ZINC
  5. NAC [Concomitant]
  6. QUERCETIN [Concomitant]
     Active Substance: QUERCETIN
  7. ASPIRIN [Concomitant]
     Active Substance: ASPIRIN
  8. PROBIOTICS NOS [Concomitant]
     Active Substance: PROBIOTICS NOS
  9. BENADRYL [Concomitant]
     Active Substance: DIPHENHYDRAMINE HYDROCHLORIDE
  10. MELATONIN [Concomitant]
     Active Substance: MELATONIN

REACTIONS (3)
  - Large intestine perforation [None]
  - Sepsis [None]
  - Peritonitis [None]

NARRATIVE: CASE EVENT DATE: 20220414
